FAERS Safety Report 4724270-5 (Version None)
Quarter: 2005Q3

REPORT INFORMATION
  Report Type: 
  Country: None (occurrence: None)
  Receive Date: 20050722
  Receipt Date: 20050706
  Transmission Date: 20060218
  Serious: Yes (Hospitalization)
  Sender: FDA-Public Use
  Company Number: 2005103281

PATIENT
  Sex: Male

DRUGS (9)
  1. INSPRA [Suspect]
     Indication: CARDIAC FAILURE
     Dosage: 25 MG (25 MG, QD), ORAL
     Route: 048
     Dates: start: 20050603, end: 20050613
  2. LEVAXIN (LEVOTHYROXINE SODIUM) [Concomitant]
  3. SPIRIVA ^PFIZER^ (TIOTROPIUM BROMIDE) [Concomitant]
  4. SERETIDE (FLUTICASONE PROPIONATE, SALMETEROL XINAFOATE0 [Concomitant]
  5. DIURAL (FUROSEMIDE) [Concomitant]
  6. SELO-ZOK (METOPROLOL SUCCINATE) [Concomitant]
  7. ZESTRIL [Concomitant]
  8. MAREVAN ^NYCOMED^ (WARFARIN SODIUM) [Concomitant]
  9. DIGITOXIN (DIGITOXIN0 [Concomitant]

REACTIONS (3)
  - RASH ERYTHEMATOUS [None]
  - RASH PRURITIC [None]
  - WOUND COMPLICATION [None]
